FAERS Safety Report 23425336 (Version 1)
Quarter: 2024Q1

REPORT INFORMATION
  Report Type: Spontaneous
  Country: GB (occurrence: GB)
  Receive Date: 20240122
  Receipt Date: 20240122
  Transmission Date: 20240410
  Serious: Yes (Other)
  Sender: FDA-Public Use
  Company Number: GB-MHRA-ADR 28326814

PATIENT

DRUGS (1)
  1. ROSUVASTATIN [Suspect]
     Active Substance: ROSUVASTATIN
     Indication: Product used for unknown indication
     Dosage: 5 MILLIGRAM, EVERY OTHER DAY(DUE TO INCREASE THIS MEDICATION TO 1 A DAY AFTER ANOTHER 3 DOSES)
     Route: 065

REACTIONS (4)
  - Constipation [Unknown]
  - Abdominal pain [Unknown]
  - Myalgia [Unknown]
  - Musculoskeletal stiffness [Unknown]
